APPROVED DRUG PRODUCT: CARMUSTINE
Active Ingredient: CARMUSTINE
Strength: 100MG/VIAL
Dosage Form/Route: INJECTABLE;INJECTION
Application: A214814 | Product #001 | TE Code: AP
Applicant: MSN LABORATORIES PRIVATE LTD
Approved: May 11, 2023 | RLD: No | RS: No | Type: RX